FAERS Safety Report 8878962 (Version 1)
Quarter: 2012Q4

REPORT INFORMATION
  Report Type: 
  Country: US (occurrence: US)
  Receive Date: 20121026
  Receipt Date: 20121026
  Transmission Date: 20130627
  Serious: Yes (Hospitalization, Other)
  Sender: FDA-Public Use
  Company Number: US-FRI-1000039738

PATIENT
  Sex: Female
  Weight: 81.82 kg

DRUGS (1)
  1. VIIBRYD [Suspect]
     Indication: DEPRESSION
     Dosage: 1 tablet
     Route: 048
     Dates: start: 20120615, end: 20120806

REACTIONS (7)
  - Insomnia [Recovered/Resolved]
  - Hypomania [Recovered/Resolved]
  - Infection [Unknown]
  - Blood calcium abnormal [Unknown]
  - Sinus bradycardia [Unknown]
  - Myocardial infarction [Unknown]
  - Blood alkaline phosphatase abnormal [Unknown]
